FAERS Safety Report 7428508-5 (Version None)
Quarter: 2011Q2

REPORT INFORMATION
  Report Type: 
  Country: None (occurrence: None)
  Receive Date: 20110413
  Receipt Date: 20110322
  Transmission Date: 20111010
  Serious: Yes (Hospitalization)
  Sender: FDA-Public Use
  Company Number: GB-022325

PATIENT
  Age: 62 Year
  Sex: Male

DRUGS (5)
  1. (CHLORAMBUCIL) [Suspect]
     Indication: CHRONIC LYMPHOCYTIC LEUKAEMIA
     Dosage: ORAL
     Route: 048
     Dates: start: 20110308
  2. (VITAMIN B1,PLAIN) [Concomitant]
  3. SIMVASTATIN [Concomitant]
  4. (RAMIPRIL) [Concomitant]
  5. (INSULIN LISPRO) [Concomitant]

REACTIONS (3)
  - HEADACHE [None]
  - HEMIPARESIS [None]
  - MALAISE [None]
